FAERS Safety Report 5763629-4 (Version None)
Quarter: 2008Q2

REPORT INFORMATION
  Report Type: 
  Country: None (occurrence: None)
  Receive Date: 20080610
  Receipt Date: 20080529
  Transmission Date: 20081010
  Serious: Yes (Other)
  Sender: FDA-Public Use
  Company Number: US-JNJFOC-20080204079

PATIENT
  Sex: Male
  Weight: 76.66 kg

DRUGS (9)
  1. REMICADE [Suspect]
     Indication: DRUG USE FOR UNKNOWN INDICATION
     Route: 042
  2. NIASPAN [Concomitant]
     Route: 048
  3. ASPIRIN [Concomitant]
  4. ENALAPRIL MALEATE [Concomitant]
     Route: 048
  5. FOSAMAX [Concomitant]
     Route: 048
  6. OMEPRAZOLE [Concomitant]
     Route: 048
  7. PLAVIX [Concomitant]
     Route: 048
  8. ZINC [Concomitant]
     Route: 048
  9. PREDNISONE TAB [Concomitant]

REACTIONS (1)
  - PARALYSIS [None]
